FAERS Safety Report 24004191 (Version 1)
Quarter: 2024Q2

REPORT INFORMATION
  Report Type: Spontaneous
  Country: NL (occurrence: NL)
  Receive Date: 20240624
  Receipt Date: 20240624
  Transmission Date: 20240715
  Serious: Yes (Death, Life-Threatening, Hospitalization, Other)
  Sender: FDA-Public Use
  Company Number: NL-NOVPHSZ-PHHY2016NL073198

PATIENT
  Age: 48 Year
  Sex: Male

DRUGS (16)
  1. AMPHOTERICIN B [Suspect]
     Active Substance: AMPHOTERICIN B
     Indication: Prophylaxis
     Dosage: 0.3 MG/KG, QD
     Route: 042
  2. BASILIXIMAB [Suspect]
     Active Substance: BASILIXIMAB
     Indication: Liver transplant
     Dosage: 20 MG, UNK
     Route: 065
  3. BASILIXIMAB [Suspect]
     Active Substance: BASILIXIMAB
     Indication: Immunosuppressant drug therapy
  4. CEFTRIAXONE [Suspect]
     Active Substance: CEFTRIAXONE\CEFTRIAXONE SODIUM
     Indication: Spontaneous bacterial peritonitis
     Dosage: 2000 MG, QD
     Route: 042
  5. CEFTRIAXONE [Suspect]
     Active Substance: CEFTRIAXONE\CEFTRIAXONE SODIUM
     Indication: Escherichia peritonitis
  6. FLUCONAZOLE [Suspect]
     Active Substance: FLUCONAZOLE
     Indication: Prophylaxis
     Dosage: 100 MG, QD
     Route: 042
  7. HYDROCORTISONE [Suspect]
     Active Substance: HYDROCORTISONE\HYDROCORTISONE ACETATE
     Indication: Liver transplant
     Dosage: 4 MG, QH
     Route: 042
  8. HYDROCORTISONE [Suspect]
     Active Substance: HYDROCORTISONE\HYDROCORTISONE ACETATE
     Indication: Immunosuppressant drug therapy
  9. MEROPENEM [Suspect]
     Active Substance: MEROPENEM
     Indication: Spontaneous bacterial peritonitis
     Dosage: 1000 MG, BID
     Route: 042
  10. PIPERACILLIN AND TAZOBACTAM [Suspect]
     Active Substance: PIPERACILLIN SODIUM\TAZOBACTAM SODIUM
     Indication: Spontaneous bacterial peritonitis
     Dosage: 4000 MG, TID
     Route: 042
  11. PIPERACILLIN AND TAZOBACTAM [Suspect]
     Active Substance: PIPERACILLIN SODIUM\TAZOBACTAM SODIUM
     Dosage: 4000 MG, TID
     Route: 042
  12. VORICONAZOLE [Suspect]
     Active Substance: VORICONAZOLE
     Indication: Prophylaxis
     Dosage: 200 MG, BID
     Route: 042
  13. AMPHOTERICIN B [Concomitant]
     Active Substance: AMPHOTERICIN B
     Dosage: 5 MG/KG, QD
     Route: 041
  14. AMPHOTERICIN B [Concomitant]
     Active Substance: AMPHOTERICIN B
     Indication: Prophylaxis
     Dosage: 5 MG/KG, QD
     Route: 042
  15. POLYMYXIN B [Concomitant]
     Active Substance: POLYMYXIN B
     Indication: Product used for unknown indication
     Dosage: 2 %, UNK
     Route: 065
  16. TOBRAMYCIN [Concomitant]
     Active Substance: TOBRAMYCIN\TOBRAMYCIN SULFATE
     Indication: Product used for unknown indication
     Dosage: 2 %, UNK
     Route: 065

REACTIONS (7)
  - Trichosporon infection [Fatal]
  - Pathogen resistance [Fatal]
  - Multiple organ dysfunction syndrome [Fatal]
  - Cholangitis [Unknown]
  - Abdominal compartment syndrome [Unknown]
  - Drug resistance [Unknown]
  - Treatment failure [Unknown]
